FAERS Safety Report 5034475-4 (Version None)
Quarter: 2006Q2

REPORT INFORMATION
  Report Type: 
  Country: None (occurrence: None)
  Receive Date: 20060626
  Receipt Date: 20060618
  Transmission Date: 20061013
  Serious: Yes (Hospitalization)
  Sender: FDA-Public Use
  Company Number: PK-AVENTIS-200616550GDDC

PATIENT
  Age: 35 Year
  Sex: Female
  Weight: 54 kg

DRUGS (5)
  1. LANTUS [Suspect]
     Indication: DIABETES MELLITUS
     Route: 058
     Dates: start: 20060528, end: 20060531
  2. AMARYL [Concomitant]
     Indication: DIABETES MELLITUS
     Route: 048
     Dates: start: 20000101
  3. METFORMIN [Concomitant]
     Indication: DIABETES MELLITUS
     Route: 048
     Dates: start: 20000101
  4. PANTOPRAZOLE [Concomitant]
     Indication: GASTRIC ULCER
     Route: 048
     Dates: start: 20060525
  5. ANATINE [Concomitant]
     Route: 048
     Dates: start: 20060525

REACTIONS (6)
  - ABDOMINAL DISTENSION [None]
  - POST PROCEDURAL HAEMORRHAGE [None]
  - RASH [None]
  - RASH GENERALISED [None]
  - RECTAL HAEMORRHAGE [None]
  - SKIN DISCOLOURATION [None]
